FAERS Safety Report 6256190-1 (Version None)
Quarter: 2009Q3

REPORT INFORMATION
  Report Type: 
  Country: None (occurrence: None)
  Receive Date: 20090706
  Receipt Date: 20090629
  Transmission Date: 20100115
  Serious: Yes (Death)
  Sender: FDA-Public Use
  Company Number: PHHY2009BR26360

PATIENT
  Sex: Male

DRUGS (2)
  1. DIOVAN [Suspect]
  2. EXELON [Suspect]
     Dosage: 18 MG/10CM2
     Route: 062

REACTIONS (1)
  - DEATH [None]
